FAERS Safety Report 5122951-5 (Version None)
Quarter: 2006Q4

REPORT INFORMATION
  Report Type: 
  Country: None (occurrence: None)
  Receive Date: 20061004
  Receipt Date: 20061004
  Transmission Date: 20070319
  Serious: No
  Sender: FDA-Public Use
  Company Number: None

PATIENT
  Age: 34 Year
  Sex: Female
  Weight: 100.6985 kg

DRUGS (1)
  1. DICYCLOMINE [Suspect]
     Indication: URINARY INCONTINENCE
     Dosage: 20 MG Q6H IV BOLUS
     Route: 040
     Dates: start: 20061002, end: 20061003

REACTIONS (2)
  - INCORRECT ROUTE OF DRUG ADMINISTRATION [None]
  - MEDICATION ERROR [None]
